FAERS Safety Report 18002964 (Version 2)
Quarter: 2021Q1

REPORT INFORMATION
  Report Type: Spontaneous
  Country: CA (occurrence: CA)
  Receive Date: 20200710
  Receipt Date: 20210118
  Transmission Date: 20210419
  Serious: Yes (Hospitalization)
  Sender: FDA-Public Use
  Company Number: CA-009507513-2007CAN003015

PATIENT
  Age: 12 Year
  Sex: Female
  Weight: 46 kg

DRUGS (15)
  1. GONAL?F [Suspect]
     Active Substance: FOLLITROPIN
     Dosage: LIQUID INTRAMUSCULAR, 250 UNITS
     Route: 058
  2. CEFAZOLIN [Concomitant]
     Active Substance: CEFAZOLIN
     Dosage: DOSAGE FORM: NOT SPECIFIED; UNK
     Route: 065
  3. SUPREFACT [Suspect]
     Active Substance: BUSERELIN
     Indication: IN VITRO FERTILISATION
     Dosage: 0.5 MILLIGRAM
     Route: 058
  4. DOXYCYCLINE. [Concomitant]
     Active Substance: DOXYCYCLINE
     Dosage: DOSAGE FORM: NOT SPECIFIED; UNK
     Route: 065
  5. DIMENHYDRINATE. [Concomitant]
     Active Substance: DIMENHYDRINATE
     Dosage: DOSAGE FORM: NOT SPECIFIED; UNK
     Route: 065
  6. PREGNYL [Suspect]
     Active Substance: CHORIOGONADOTROPIN ALFA
     Indication: IN VITRO FERTILISATION
     Dosage: 1500 UNITS
     Route: 058
  7. LUVERIS [Suspect]
     Active Substance: LUTROPIN ALFA
     Dosage: 225.0 UNITS
     Route: 058
  8. LUVERIS [Suspect]
     Active Substance: LUTROPIN ALFA
     Dosage: 150.0 UNITS
     Route: 058
  9. ACETAMINOPHEN. [Concomitant]
     Active Substance: ACETAMINOPHEN
     Dosage: DOSAGE FORM: NOT SPECIFIED; UNK
     Route: 065
  10. LUVERIS [Suspect]
     Active Substance: LUTROPIN ALFA
     Indication: IN VITRO FERTILISATION
     Dosage: 225.0 UNITS
     Route: 058
  11. CODEINE [Concomitant]
     Active Substance: CODEINE
     Dosage: DOSAGE FORM: NOT SPECIFIED; UNK
     Route: 065
  12. CETROTIDE [Suspect]
     Active Substance: CETRORELIX ACETATE
     Indication: IN VITRO FERTILISATION
     Dosage: 0.25 (UNITS NOT PROVIDED), 1 EVERY 1 DAYS
     Route: 058
  13. GONAL?F [Suspect]
     Active Substance: FOLLITROPIN
     Indication: IN VITRO FERTILISATION
     Dosage: LIQUID INTRAMUSCULAR, 460 UNITS
     Route: 058
  14. GONAL?F [Suspect]
     Active Substance: FOLLITROPIN
     Dosage: LIQUID INTRAMUSCULAR, 450 UNITS
     Route: 058
  15. FOLIC ACID. [Concomitant]
     Active Substance: FOLIC ACID
     Dosage: DOSAGE FORM: NOT SPECIFIED; UNK
     Route: 065

REACTIONS (5)
  - Ovarian hyperstimulation syndrome [Unknown]
  - Ovarian haemorrhage [Unknown]
  - Ovarian enlargement [Unknown]
  - Noninfective oophoritis [Unknown]
  - Adnexa uteri pain [Unknown]
